FAERS Safety Report 10396458 (Version 1)
Quarter: 2014Q1

REPORT INFORMATION
  Report Type: Spontaneous
  Country: US (occurrence: None)
  Receive Date: 20130606
  Receipt Date: 20130606
  Transmission Date: 20141002
  Serious: No
  Sender: FDA-Public Use
  Company Number: 2013BAX011893

PATIENT
  Age: 49 Year
  Sex: Female
  Weight: 115.21 kg

DRUGS (10)
  1. GAMMAGARD LIQUID (IMMUNOGLOBULIN, NORMAL HUMAN) (SOLUTION FOR INFUSION) [Suspect]
     Indication: IMMUNODEFICIENCY
     Dosage: 2.1429 GM (15 GM, 1 IN 1 WK)
     Route: 058
     Dates: start: 20130219
  2. SINGULAIR (MONTELUKAST SODIUM) TABLET [Concomitant]
  3. ADVAIR (FLUTICASONE PROPIONATE, SALMETEROL XINAFOATE) [Concomitant]
  4. OMEPRAZOLE [Concomitant]
  5. QVAR (BECLOMETASONE DIPROPIONATE) [Concomitant]
  6. FLONASE (FLUTICASONE PROPIONATE) [Concomitant]
  7. ALBUTEROL HFA (SALBUTAMOL) [Concomitant]
  8. AMLODIPINE [Concomitant]
  9. ALLEGRA (FEXOFENADINE HYDROCHLORIDE) [Concomitant]
  10. ZYRTEC (CETIRIZINE HYDROCHLORIDE) [Concomitant]

REACTIONS (1)
  - Infusion site rash [None]
